FAERS Safety Report 5804814-2 (Version None)
Quarter: 2008Q3

REPORT INFORMATION
  Report Type: 
  Country: None (occurrence: None)
  Receive Date: 20080709
  Receipt Date: 20080701
  Transmission Date: 20090109
  Serious: Yes (Hospitalization, Other)
  Sender: FDA-Public Use
  Company Number: US-ROCHE-573470

PATIENT
  Sex: Female

DRUGS (3)
  1. CAPECITABINE [Suspect]
     Indication: RECTAL CANCER
     Dosage: GIVEN EVERY 12 HOURS, FIVE DAYS WEEKLY, STARTING ON DAY -1 TO RADIATION THERAPY.
     Route: 048
     Dates: start: 20071220, end: 20080117
  2. BEVACIZUMAB [Suspect]
     Indication: RECTAL CANCER
     Dosage: GIVEN OVER 30-90MINUTES EVERY OTHER WEEK ON DAYS 1, 15, 29 DURING RADIATION THERAPY.
     Route: 042
     Dates: start: 20071220, end: 20080117
  3. ELOXATIN [Suspect]
     Indication: RECTAL CANCER
     Dosage: GIVEN OVER 2 HOURS ON DAYS 1, 8, 15, 22 AND 29 DURING RADIATION THERAPY.
     Route: 042
     Dates: start: 20071220, end: 20080117

REACTIONS (3)
  - ENTEROCOLITIS INFECTIOUS [None]
  - INCISION SITE COMPLICATION [None]
  - WOUND COMPLICATION [None]
